FAERS Safety Report 9753377 (Version 1)
Quarter: 2013Q4

REPORT INFORMATION
  Report Type: Spontaneous
  Country: US (occurrence: US)
  Receive Date: 20131213
  Receipt Date: 20131213
  Transmission Date: 20140711
  Serious: No
  Sender: FDA-Public Use
  Company Number: US-TEVA-406185USA

PATIENT
  Age: 42 Year
  Sex: Female
  Weight: 54.48 kg

DRUGS (1)
  1. PARAGARD 380A [Suspect]
     Indication: CONTRACEPTION
     Route: 015
     Dates: start: 20130501, end: 20130508

REACTIONS (5)
  - Back pain [Recovered/Resolved]
  - Abdominal distension [Recovered/Resolved]
  - Weight increased [Not Recovered/Not Resolved]
  - Metrorrhagia [Not Recovered/Not Resolved]
  - Metrorrhagia [Recovered/Resolved]
